FAERS Safety Report 5459400-3 (Version None)
Quarter: 2007Q3

REPORT INFORMATION
  Report Type: 
  Country: None (occurrence: None)
  Receive Date: 20070919
  Receipt Date: 20070910
  Transmission Date: 20080115
  Serious: Yes (Hospitalization)
  Sender: FDA-Public Use
  Company Number: CA-JNJFOC-20070902142

PATIENT
  Sex: Female

DRUGS (1)
  1. RISPERDAL [Suspect]
     Indication: BIPOLAR DISORDER
     Route: 048

REACTIONS (5)
  - ASTHENIA [None]
  - COLONIC POLYP [None]
  - GASTROINTESTINAL DISORDER [None]
  - NAUSEA [None]
  - WEIGHT DECREASED [None]
